FAERS Safety Report 4868469-6 (Version None)
Quarter: 2005Q4

REPORT INFORMATION
  Report Type: 
  Country: None (occurrence: None)
  Receive Date: 20051223
  Receipt Date: 20051214
  Transmission Date: 20060501
  Serious: Yes (Other)
  Sender: FDA-Public Use
  Company Number: 2005168804

PATIENT
  Age: 50 Year
  Sex: Male
  Weight: 77.1115 kg

DRUGS (2)
  1. LYRICA [Suspect]
     Indication: POST HERPETIC NEURALGIA
     Dosage: 150 MG (75 MG, 2 IN 1 D), ORAL
     Route: 048
     Dates: start: 20050101
  2. DURAGESIC-100 [Concomitant]

REACTIONS (5)
  - HEART RATE INCREASED [None]
  - HYPOACUSIS [None]
  - PARAESTHESIA ORAL [None]
  - PERIPHERAL COLDNESS [None]
  - TINNITUS [None]
